FAERS Safety Report 6838767-5 (Version None)
Quarter: 2010Q3

REPORT INFORMATION
  Report Type: 
  Country: None (occurrence: None)
  Receive Date: 20100713
  Receipt Date: 20070626
  Transmission Date: 20110219
  Serious: No
  Sender: FDA-Public Use
  Company Number: US-PFIZER INC-2007042588

PATIENT
  Sex: Male
  Weight: 85.3 kg

DRUGS (5)
  1. CHANTIX [Suspect]
     Indication: SMOKING CESSATION THERAPY
     Route: 048
     Dates: start: 20070505
  2. FIORICET [Concomitant]
     Indication: MIGRAINE
     Dosage: 6 EVERY 1 DAYS
  3. COPAXONE [Concomitant]
     Indication: MULTIPLE SCLEROSIS
  4. MECLIZINE [Concomitant]
  5. DRUG, UNSPECIFIED [Concomitant]

REACTIONS (7)
  - ABDOMINAL PAIN [None]
  - ABDOMINAL PAIN UPPER [None]
  - FATIGUE [None]
  - HYPERSOMNIA [None]
  - NAUSEA [None]
  - PAIN [None]
  - PYREXIA [None]
